FAERS Safety Report 5338580-4 (Version None)
Quarter: 2007Q2

REPORT INFORMATION
  Report Type: 
  Country: None (occurrence: None)
  Receive Date: 20070322
  Receipt Date: 20060705
  Transmission Date: 20071010
  Serious: Yes (Other)
  Sender: FDA-Public Use
  Company Number: 200612331BCC

PATIENT
  Sex: Female
  Weight: 64.4108 kg

DRUGS (10)
  1. ALEVE [Suspect]
     Indication: ARTHRITIS
     Dosage: 660 MG, TOTAL DAILY, ORAL
     Route: 048
     Dates: start: 19960101
  2. OXYCODONE HCL AND ACETAMINOPHEN [Concomitant]
  3. LISINOPRIL AND HYDROCHLOROTHIAZIDE [Concomitant]
  4. TRAMADOL HCL [Concomitant]
  5. ALBUTEROL [Concomitant]
  6. QVAR 40 [Concomitant]
  7. ACID REDUCER [Concomitant]
  8. CALCIUM CHLORIDE [Concomitant]
  9. VITAMIN CAP [Concomitant]
  10. OXYBUTYNIN CHLORIDE [Concomitant]

REACTIONS (3)
  - GASTRIC DISORDER [None]
  - GASTROOESOPHAGEAL REFLUX DISEASE [None]
  - PEPTIC ULCER [None]
